FAERS Safety Report 9705698 (Version 3)
Quarter: 2015Q3

REPORT INFORMATION
  Report Type: Spontaneous
  Country: US (occurrence: US)
  Receive Date: 20131122
  Receipt Date: 20150803
  Transmission Date: 20151125
  Serious: No
  Sender: FDA-Public Use
  Company Number: US-GILEAD-2008-0017238

PATIENT
  Age: 41 Year
  Sex: Female
  Weight: 171 kg

DRUGS (5)
  1. FLOVENT [Concomitant]
     Active Substance: FLUTICASONE PROPIONATE
     Dosage: AS DIRECTED
     Route: 055
  2. LETAIRIS [Suspect]
     Active Substance: AMBRISENTAN
     Indication: PULMONARY ARTERIAL HYPERTENSION
     Route: 048
     Dates: start: 20080522
  3. ADVAIR HFA [Concomitant]
     Active Substance: FLUTICASONE PROPIONATE\SALMETEROL XINAFOATE
     Dosage: AS DIRECTED
     Route: 055
  4. OXYGEN. [Concomitant]
     Active Substance: OXYGEN
     Dosage: AS DIRECTED
     Route: 055
  5. LASIX [Concomitant]
     Active Substance: FUROSEMIDE
     Dosage: AS DIRECTED
     Route: 048

REACTIONS (1)
  - Hepatic enzyme increased [None]
